FAERS Safety Report 9100403 (Version 1)
Quarter: 2013Q1

REPORT INFORMATION
  Report Type: Spontaneous
  Country: AU (occurrence: AU)
  Receive Date: 20130214
  Receipt Date: 20130214
  Transmission Date: 20140127
  Serious: Yes (Death)
  Sender: FDA-Public Use
  Company Number: PHHY2013AU014414

PATIENT
  Age: 89 Year
  Sex: Male

DRUGS (1)
  1. ONBREZ [Suspect]
     Dosage: 300 UG, UNK

REACTIONS (1)
  - Lung neoplasm malignant [Fatal]
